FAERS Safety Report 10208639 (Version 1)
Quarter: 2014Q2

REPORT INFORMATION
  Report Type: Spontaneous
  Country: US (occurrence: US)
  Receive Date: 20140530
  Receipt Date: 20140530
  Transmission Date: 20141212
  Serious: Yes (Other)
  Sender: FDA-Public Use
  Company Number: PHHY2014US064001

PATIENT
  Sex: Female

DRUGS (27)
  1. XOLAIR [Suspect]
     Dosage: UNK
     Dates: start: 2007, end: 2009
  2. NORTRIPTYLINE [Suspect]
     Dosage: UNK
  3. CLINDAMYCIN [Suspect]
     Dosage: UNK
  4. CYCLOBENZAPRINE [Suspect]
     Dosage: UNK
  5. MIRTAZAPINE [Suspect]
     Dosage: UNK
  6. BETHANECHOL [Suspect]
     Dosage: UNK
  7. FORTEO [Suspect]
     Dosage: UNK
  8. FLEXERIL [Suspect]
     Dosage: UNK
  9. SYNVISC [Suspect]
     Dosage: UNK
  10. SINGULAR [Concomitant]
     Dosage: UNK
  11. NUCYNTA [Concomitant]
     Dosage: UNK
  12. GABAPENTIN [Concomitant]
     Dosage: UNK
  13. CALCITONIN [Concomitant]
     Dosage: UNK
  14. LOSARTAN [Concomitant]
     Dosage: UNK
  15. CLONAZEPAM [Concomitant]
     Dosage: UNK
  16. REGLINIDE [Concomitant]
     Dosage: UNK
  17. FLUTICASONE PROPIONATE [Concomitant]
     Dosage: UNK
  18. FEXOFENADINE [Concomitant]
     Dosage: UNK
  19. TUDORZA PRESSAIR [Concomitant]
     Dosage: UNK
  20. DULERA [Concomitant]
     Dosage: UNK
  21. MULTI-VIT [Concomitant]
     Dosage: UNK
  22. FISH OIL [Concomitant]
     Dosage: UNK
  23. CHOLEST-OFF [Concomitant]
     Dosage: UNK UKN, UNK
  24. NIACIN [Concomitant]
     Dosage: UNK
  25. ASPIRIN [Concomitant]
     Dosage: UNK
  26. CALCIUM [Concomitant]
     Dosage: UNK UKN, UNK
  27. MAGNESIUM [Concomitant]
     Dosage: UNK UKN, UNK

REACTIONS (21)
  - Viral infection [Unknown]
  - Asthma [Unknown]
  - Dyspnoea [Unknown]
  - Joint swelling [Unknown]
  - Muscle spasms [Unknown]
  - Abdominal pain upper [Unknown]
  - Nausea [Unknown]
  - Heart rate increased [Unknown]
  - Dizziness [Unknown]
  - Chest pain [Unknown]
  - Heart rate irregular [Unknown]
  - Oesophageal spasm [Unknown]
  - Headache [Unknown]
  - Fibromyalgia [Unknown]
  - Osteoporosis [Unknown]
  - Arthritis [Unknown]
  - Restless legs syndrome [Unknown]
  - Hiatus hernia [Unknown]
  - Hypertension [Unknown]
  - Hypothyroidism [Unknown]
  - Sleep apnoea syndrome [Unknown]
